FAERS Safety Report 10892187 (Version 3)
Quarter: 2015Q2

REPORT INFORMATION
  Report Type: Report from Study
  Country: US (occurrence: US)
  Receive Date: 20150306
  Receipt Date: 20150422
  Transmission Date: 20150821
  Serious: Yes (Other)
  Sender: FDA-Public Use
  Company Number: US-JNJFOC-20150217807

PATIENT
  Age: 53 Year
  Sex: Female
  Weight: 93.9 kg

DRUGS (6)
  1. SKELAXIN [Concomitant]
     Active Substance: METAXALONE
     Indication: MUSCLE RELAXANT THERAPY
     Route: 065
     Dates: start: 2014
  2. XARELTO [Suspect]
     Active Substance: RIVAROXABAN
     Indication: THROMBOSIS PROPHYLAXIS
     Route: 048
     Dates: start: 20130327, end: 20130409
  3. XARELTO [Suspect]
     Active Substance: RIVAROXABAN
     Indication: KNEE ARTHROPLASTY
     Route: 048
     Dates: start: 20130327, end: 20130409
  4. HYZAAR [Concomitant]
     Active Substance: HYDROCHLOROTHIAZIDE\LOSARTAN POTASSIUM
     Indication: BLOOD PRESSURE
     Dosage: 100 MG/25
     Route: 065
     Dates: start: 2009
  5. PRILOSEC [Concomitant]
     Active Substance: OMEPRAZOLE MAGNESIUM
     Indication: GASTRIC DISORDER
     Route: 065
     Dates: start: 2014
  6. XANAX [Concomitant]
     Active Substance: ALPRAZOLAM
     Indication: NERVE INJURY
     Route: 065
     Dates: start: 2011

REACTIONS (3)
  - Blood pressure decreased [Recovered/Resolved]
  - Pain [Not Recovered/Not Resolved]
  - Post procedural haemorrhage [Recovered/Resolved]

NARRATIVE: CASE EVENT DATE: 20130327
